FAERS Safety Report 4696341-3 (Version None)
Quarter: 2005Q2

REPORT INFORMATION
  Report Type: 
  Country: None (occurrence: None)
  Receive Date: 20050620
  Receipt Date: 20050609
  Transmission Date: 20051028
  Serious: Yes (Other)
  Sender: FDA-Public Use
  Company Number: 2005-05-0863

PATIENT
  Age: 19 Year
  Sex: Female
  Weight: 108.8633 kg

DRUGS (4)
  1. ALBUTEROL                     ^PROVENTIL^ ORAL AEROSOL [Suspect]
     Indication: ASTHMA
     Dosage: PRN ORAL AER INH
     Route: 055
     Dates: end: 20050511
  2. TRAZODONE [Concomitant]
     Indication: UPPER RESPIRATORY TRACT INFECTION
  3. LEXAPRO [Concomitant]
  4. ........... [Concomitant]

REACTIONS (13)
  - AMNESIA [None]
  - CHOKING [None]
  - COUGH [None]
  - CYANOSIS [None]
  - DEPRESSED LEVEL OF CONSCIOUSNESS [None]
  - DYSPNOEA [None]
  - INFECTION [None]
  - NASOPHARYNGITIS [None]
  - PAIN [None]
  - PHARMACEUTICAL PRODUCT COMPLAINT [None]
  - PHARYNGOLARYNGEAL PAIN [None]
  - SENSATION OF FOREIGN BODY [None]
  - TRACHEAL OBSTRUCTION [None]
